FAERS Safety Report 23311263 (Version 1)
Quarter: 2023Q4

REPORT INFORMATION
  Report Type: Spontaneous
  Country: CN (occurrence: CN)
  Receive Date: 20231219
  Receipt Date: 20231219
  Transmission Date: 20240110
  Serious: Yes (Hospitalization)
  Sender: FDA-Public Use
  Company Number: CN-SHANGHAI JUNSHI BIOSCIENCES CO., LTD.-CN2023008848

PATIENT

DRUGS (3)
  1. TORIPALIMAB [Suspect]
     Active Substance: TORIPALIMAB
     Indication: Cervix carcinoma
     Dosage: 240 MG, EVERY 21 DAYS
     Route: 041
     Dates: start: 20231020
  2. TORIPALIMAB [Suspect]
     Active Substance: TORIPALIMAB
     Dosage: 240 MG, EVERY 21 DAYS
     Route: 041
     Dates: start: 20231110
  3. TORIPALIMAB [Suspect]
     Active Substance: TORIPALIMAB
     Dosage: 240 MG, EVERY 21 DAYS
     Route: 041
     Dates: start: 20231201

REACTIONS (2)
  - Liver injury [Recovering/Resolving]
  - Off label use [Unknown]
